FAERS Safety Report 14822295 (Version 3)
Quarter: 2018Q4

REPORT INFORMATION
  Report Type: Spontaneous
  Country: GB (occurrence: FR)
  Receive Date: 20180427
  Receipt Date: 20181108
  Transmission Date: 20190204
  Serious: Yes (Hospitalization)
  Sender: FDA-Public Use
  Company Number: FR-FRESENIUS KABI-FK201805000

PATIENT
  Age: 10 Year
  Sex: Male
  Weight: 25 kg

DRUGS (24)
  1. SODIUM CHLORIDE (NOT SPECIFIED) [Suspect]
     Active Substance: SODIUM CHLORIDE
     Dosage: 20ML; 7 DAYS A WEEK, IV CENTRAL LINE (PORT-A-CATH), FORMULA: PCARL04LK (CONTAINED VITAMIN K1)
     Route: 042
     Dates: start: 201803
  2. SELENIUM [Suspect]
     Active Substance: SELENIUM
     Indication: PARENTERAL NUTRITION
     Dosage: 11ML; 7 DAYS A WEEK, IV CENTRAL LINE (PORT-A-CATH), FORMULA: PCARL04LK (CONTAINED VITAMIN K1)
     Route: 042
     Dates: start: 201803
  3. GLUCOSE 1-PHOSPHATE DISODIUM [Suspect]
     Active Substance: .ALPHA.-GLUCOSE-1-PHOSPHATE
     Indication: PARENTERAL NUTRITION
     Dosage: 16ML, 7 DAYS A WEEK, IV CENTRAL LINE (PORT-A-CATH), FORMULA: PCARL04LK (CONTAINED VITAMIN K1)
     Route: 042
     Dates: start: 201803
  4. SODIUM CHLORIDE (NOT SPECIFIED) [Suspect]
     Active Substance: SODIUM CHLORIDE
     Indication: PARENTERAL NUTRITION
     Dosage: 20ML; 7 DAYS A WEEK, IV CENTRAL LINE (PORT-A-CATH), FORMULA: PCARL04L (WITHOUT VITAMIN K1)
     Route: 042
     Dates: start: 201803
  5. VITALIPID [Suspect]
     Active Substance: ERGOCALCIFEROL\PHYTONADIONE\RETINOL\TOCOPHEROL
     Dosage: 16ML;7 DAYS A WEEK, IV CENTRAL LINE (PORT-A-CATH), FORMULA:PCARL04L (WITHOUT VITAMIN K1)
     Route: 042
     Dates: start: 201803
  6. GLUCOSE (MANUFACTURER UNKNOWN) [Suspect]
     Active Substance: DEXTROSE
     Dosage: 599ML;7 DAYS A WEEK, IV CENTRAL LINE (PORT-A-CATH), FORMULA:  PCARL04LK (CONTAINED VITAMIN K1)
     Route: 042
     Dates: start: 201803
  7. GLUCOSE 1-PHOSPHATE DISODIUM [Suspect]
     Active Substance: .ALPHA.-GLUCOSE-1-PHOSPHATE
     Dosage: 16ML, 7 DAYS A WEEK, IV CENTRAL LINE (PORT-A-CATH), FORMULA:  PCARL04L (WITHOUT VITAMIN K1)
     Route: 042
     Dates: start: 201803
  8. SMOFLIPID [Suspect]
     Active Substance: FISH OIL\MEDIUM-CHAIN TRIGLYCERIDES\OLIVE OIL\SOYBEAN OIL
     Dosage: 230ML/QD;7 DAYS A WEEK, IV CENTRAL LINE (PORT-A-CATH), FORMULA: PCARL04L (WITHOUT VITAMIN K1)
     Route: 042
     Dates: start: 201803
  9. RANITIDINE. [Suspect]
     Active Substance: RANITIDINE
     Dosage: 1.1ML;7 DAYS A WEEK, IV CENTRAL LINE (PORT-A-CATH), FORMULA: 7 DAYS A WEEK, IV CENTRAL LINE (PORT-A-
     Route: 042
     Dates: start: 201803
  10. AMINO ACIDS NOS [Suspect]
     Active Substance: AMINO ACIDS
     Dosage: 393 ML,7 DAYS A WEEK, IV CENTRAL LINE (PORT-A-CATH), FORMULA: PCARL04LK (CONTAINED VITAMIN K1)
     Route: 042
     Dates: start: 201803
  11. VITALIPID [Suspect]
     Active Substance: ERGOCALCIFEROL\PHYTONADIONE\RETINOL\TOCOPHEROL
     Indication: PARENTERAL NUTRITION
     Dosage: 16ML;7 DAYS A WEEK, IV CENTRAL LINE (PORT-A-CATH), FORMULA: PCARL04LK (CONTAINED VITAMIN K1)
     Route: 042
     Dates: start: 201803
  12. PHYTOMENADIONE [Suspect]
     Active Substance: PHYTONADIONE
     Indication: PARENTERAL NUTRITION
     Dosage: 1.1ML;  RECEIVED AS PART OF TPN, ONLY IN FORMULA PCARL04LK
     Route: 042
     Dates: start: 201803
  13. AMINO ACIDS NOS [Suspect]
     Active Substance: AMINO ACIDS
     Indication: PARENTERAL NUTRITION
     Dosage: 393 ML,7 DAYS A WEEK, IV CENTRAL LINE (PORT-A-CATH), FORMULA: PCARL04L (WITHOUT VITAMIN K1)
     Route: 042
     Dates: start: 201803
  14. CALCIUM GLUCONATE. [Suspect]
     Active Substance: CALCIUM GLUCONATE
     Indication: PARENTERAL NUTRITION
     Dosage: 24ML;7 DAYS A WEEK, IV CENTRAL LINE (PORT-A-CATH), FORMULA: PCARL04LK (CONTAINED VITAMIN K1)
     Route: 042
     Dates: start: 201803
  15. POTASSIUM CHLORIDE (NOT SPECIFIED) [Suspect]
     Active Substance: POTASSIUM CHLORIDE
     Dosage: 36ML;7 DAYS A WEEK, IV CENTRAL LINE (PORT-A-CATH), FORMULA: PCARL04LK (CONTAINED VITAMIN K1)
     Route: 042
     Dates: start: 201803
  16. GLUCOSE (MANUFACTURER UNKNOWN) [Suspect]
     Active Substance: DEXTROSE
     Indication: PARENTERAL NUTRITION
     Dosage: 599ML;7 DAYS A WEEK, IV CENTRAL LINE (PORT-A-CATH), FORMULA: PCARL04L (WITHOUT VITAMIN K1)
     Route: 042
     Dates: start: 201803
  17. RANITIDINE. [Suspect]
     Active Substance: RANITIDINE
     Indication: PARENTERAL NUTRITION
     Dosage: 1.1ML;7 DAYS A WEEK, IV CENTRAL LINE (PORT-A-CATH), FORMULA: PCARL04LK (CONTAINED VITAMIN K1)
     Route: 042
     Dates: start: 201803
  18. MAGNESIUM CHLORIDE. [Suspect]
     Active Substance: MAGNESIUM CHLORIDE
     Indication: PRODUCT USED FOR UNKNOWN INDICATION
     Dosage: 6.6ML  WEEKLY,7 DAYS A WEEK, IV CENTRAL LINE (PORT-A-CATH), FORMULA: PCARL04LK (CONTAINED VITAMIN K1
     Route: 042
     Dates: start: 201803
  19. MAGNESIUM CHLORIDE. [Suspect]
     Active Substance: MAGNESIUM CHLORIDE
     Dosage: 6.6ML  WEEKLY,7 DAYS A WEEK, IV CENTRAL LINE (PORT-A-CATH), FORMULA:  PCARL04L (WITHOUT VITAMIN K1)
     Route: 042
     Dates: start: 201803
  20. SMOFLIPID [Suspect]
     Active Substance: FISH OIL\MEDIUM-CHAIN TRIGLYCERIDES\OLIVE OIL\SOYBEAN OIL
     Indication: PARENTERAL NUTRITION
     Dosage: 230ML; 7 DAYS A WEEK, IV CENTRAL LINE (PORT-A-CATH), FORMULA: PCARL04LK (CONTAINED VITAMIN K1)
     Route: 042
     Dates: start: 201803
  21. CALCIUM GLUCONATE. [Suspect]
     Active Substance: CALCIUM GLUCONATE
     Dosage: 24ML;7 DAYS A WEEK, IV CENTRAL LINE (PORT-A-CATH), FORMULA: PCARL04L (WITHOUT VITAMIN K1)
     Route: 042
     Dates: start: 201803
  22. POTASSIUM CHLORIDE (NOT SPECIFIED) [Suspect]
     Active Substance: POTASSIUM CHLORIDE
     Indication: PARENTERAL NUTRITION
     Dosage: 36ML; 7 DAYS A WEEK, IV CENTRAL LINE (PORT-A-CATH), FORMULA: PCARL04L (WITHOUT VITAMIN K1)
     Route: 042
     Dates: start: 201803
  23. SELENIUM [Suspect]
     Active Substance: SELENIUM
     Dosage: 11ML; 7 DAYS A WEEK, IV CENTRAL LINE (PORT-A-CATH), FORMULA: PCARL04L (WITHOUT VITAMIN K1)
     Route: 042
     Dates: start: 201803
  24. HUMIRA [Concomitant]
     Active Substance: ADALIMUMAB
     Indication: PRODUCT USED FOR UNKNOWN INDICATION
     Dosage: UNKNOWN
     Route: 065

REACTIONS (4)
  - Device related infection [Recovering/Resolving]
  - Bacterial sepsis [Recovering/Resolving]
  - Device related sepsis [Recovering/Resolving]
  - Lactobacillus test positive [Recovering/Resolving]

NARRATIVE: CASE EVENT DATE: 20180401
